FAERS Safety Report 4830709-7 (Version None)
Quarter: 2005Q4

REPORT INFORMATION
  Report Type: 
  Country: None (occurrence: None)
  Receive Date: 20051114
  Receipt Date: 20051103
  Transmission Date: 20060501
  Serious: Yes (Hospitalization)
  Sender: FDA-Public Use
  Company Number: 12823

PATIENT
  Age: 48 Year
  Sex: Male

DRUGS (9)
  1. CISPLATIN [Suspect]
     Indication: LUNG SQUAMOUS CELL CARCINOMA STAGE UNSPECIFIED
     Dosage: 160, MG PER_CYCLE, IV
     Route: 042
     Dates: start: 20050517, end: 20050818
  2. VINORELBINE [Suspect]
     Indication: LUNG SQUAMOUS CELL CARCINOMA STAGE UNSPECIFIED
     Dosage: 50 MG PER_CYCLE, IV
     Route: 042
     Dates: start: 20050517, end: 20050825
  3. ESOMEPRAZOLE [Concomitant]
  4. DOMPERIDONE [Concomitant]
  5. ONDANSETRON [Concomitant]
  6. METOCLOPRAMIDE [Concomitant]
  7. MORPHINE SULFATE [Concomitant]
  8. AMOXICILLIN [Concomitant]
  9. LANSOPRAZOLE [Concomitant]

REACTIONS (3)
  - NEUTROPENIC SEPSIS [None]
  - PLATELET COUNT DECREASED [None]
  - WHITE BLOOD CELL COUNT DECREASED [None]
